FAERS Safety Report 12840052 (Version 1)
Quarter: 2016Q4

REPORT INFORMATION
  Report Type: Spontaneous
  Country: CZ (occurrence: CZ)
  Receive Date: 20161012
  Receipt Date: 20161012
  Transmission Date: 20170207
  Serious: Yes (Other)
  Sender: FDA-Public Use
  Company Number: CZ-009507513-1610CZE004110

PATIENT
  Age: 36 Year
  Sex: Female

DRUGS (2)
  1. RIBAVIRIN. [Suspect]
     Active Substance: RIBAVIRIN
     Indication: CHRONIC HEPATITIS C
     Dosage: UNK
     Route: 048
  2. PEGINTERFERON ALFA-2B [Suspect]
     Active Substance: PEGINTERFERON ALFA-2B

REACTIONS (4)
  - Autoimmune hepatitis [Unknown]
  - Treatment failure [Unknown]
  - Diabetes mellitus [Unknown]
  - Hepatic cirrhosis [Unknown]
